FAERS Safety Report 7719971-0 (Version None)
Quarter: 2011Q3

REPORT INFORMATION
  Report Type: 
  Country: None (occurrence: None)
  Receive Date: 20110831
  Receipt Date: 20110823
  Transmission Date: 20111222
  Serious: No
  Sender: FDA-Public Use
  Company Number: US-BIOGENIDEC-2011BI032675

PATIENT
  Sex: Female

DRUGS (5)
  1. TYSABRI [Suspect]
     Indication: MULTIPLE SCLEROSIS
     Route: 042
     Dates: start: 20110629
  2. AVONEX [Concomitant]
     Indication: MULTIPLE SCLEROSIS
     Route: 030
     Dates: start: 20010101
  3. COPAXONE [Concomitant]
     Indication: MULTIPLE SCLEROSIS
  4. TYLENOL-500 [Concomitant]
     Indication: PREMEDICATION
     Dates: start: 20110601
  5. REBIF [Concomitant]
     Indication: MULTIPLE SCLEROSIS

REACTIONS (5)
  - MALAISE [None]
  - CEREBRAL ATROPHY [None]
  - HEADACHE [None]
  - DEPRESSION [None]
  - ARTHRALGIA [None]
